FAERS Safety Report 5624698-5 (Version None)
Quarter: 2008Q1

REPORT INFORMATION
  Report Type: 
  Country: None (occurrence: None)
  Receive Date: 20080213
  Receipt Date: 20080205
  Transmission Date: 20080703
  Serious: Yes (Other)
  Sender: FDA-Public Use
  Company Number: B0506453A

PATIENT
  Sex: Female

DRUGS (1)
  1. AMOXICILLIN + CLAVULANATE POTASSIUM [Suspect]
     Indication: ESCHERICHIA URINARY TRACT INFECTION
     Route: 065
     Dates: start: 20080116

REACTIONS (4)
  - CHROMATURIA [None]
  - JAUNDICE CHOLESTATIC [None]
  - MALAISE [None]
  - PRURITUS [None]
